FAERS Safety Report 7514945-7 (Version None)
Quarter: 2011Q2

REPORT INFORMATION
  Report Type: 
  Country: None (occurrence: None)
  Receive Date: 20110601
  Receipt Date: 20110517
  Transmission Date: 20111010
  Serious: Yes (Other)
  Sender: FDA-Public Use
  Company Number: JP-JNJFOC-20101203108

PATIENT
  Age: 42 Year
  Sex: Female
  Weight: 70 kg

DRUGS (17)
  1. REMICADE [Suspect]
     Route: 042
     Dates: start: 20091212
  2. LOXOPROFEN [Concomitant]
     Indication: RHEUMATOID ARTHRITIS
     Route: 048
  3. METHOTREXATE [Concomitant]
     Indication: RHEUMATOID ARTHRITIS
     Route: 048
  4. TOCILIZUMAB [Concomitant]
     Dates: start: 20100531
  5. ISONIAZID [Concomitant]
     Indication: ANTIBIOTIC PROPHYLAXIS
  6. FOLIC ACID [Concomitant]
     Indication: PROPHYLAXIS
     Route: 048
  7. MUCOSTA [Concomitant]
     Indication: PROPHYLAXIS
     Route: 048
  8. LANSOPRAZOLE [Concomitant]
     Route: 048
  9. REMICADE [Suspect]
     Route: 042
     Dates: start: 20100306
  10. REMICADE [Suspect]
     Route: 042
  11. REMICADE [Suspect]
     Route: 042
     Dates: start: 20100501
  12. REMICADE [Suspect]
     Route: 042
  13. REMICADE [Suspect]
     Route: 042
     Dates: start: 20090905
  14. NORVASC [Concomitant]
     Route: 048
  15. REMICADE [Suspect]
     Indication: RHEUMATOID ARTHRITIS
     Route: 042
     Dates: start: 20100403
  16. REMICADE [Suspect]
     Route: 042
     Dates: start: 20100206
  17. PURSENNID [Concomitant]
     Route: 048

REACTIONS (2)
  - INFUSION RELATED REACTION [None]
  - PALPITATIONS [None]
